FAERS Safety Report 8472087-0 (Version None)
Quarter: 2012Q2

REPORT INFORMATION
  Report Type: 
  Country: None (occurrence: None)
  Receive Date: 20120627
  Receipt Date: 20120613
  Transmission Date: 20120825
  Serious: Yes (Other)
  Sender: FDA-Public Use
  Company Number: AR-UCBSA-060185

PATIENT
  Sex: Female

DRUGS (3)
  1. KEPPRA [Suspect]
     Dosage: DAILY DOSE 1000 MG
     Dates: start: 20110601
  2. VALPROIC ACID [Concomitant]
  3. KEPPRA [Suspect]
     Dosage: DAILY DOSE 1500 MG
     Dates: start: 20120101

REACTIONS (4)
  - DELIRIUM [None]
  - SOMNOLENCE [None]
  - CONVULSION [None]
  - HALLUCINATION [None]
